FAERS Safety Report 9375820 (Version 2)
Quarter: 2013Q3

REPORT INFORMATION
  Report Type: Spontaneous
  Country: US (occurrence: US)
  Receive Date: 20130628
  Receipt Date: 20130924
  Transmission Date: 20140515
  Serious: No
  Sender: FDA-Public Use
  Company Number: US-PFIZER INC-2013190397

PATIENT
  Age: 66 Year
  Sex: Male

DRUGS (1)
  1. BOSULIF [Suspect]
     Indication: CHRONIC MYELOID LEUKAEMIA
     Dosage: 400 MG, 1X/DAY (FOUR TABLETS OF 100MG; FIRST TAKEN AT 100MG DAILY AND GRADUALLY INCREASED TO 400MG)
     Route: 048
     Dates: start: 20130618

REACTIONS (3)
  - Diarrhoea [Unknown]
  - Rash [Unknown]
  - Abdominal discomfort [Unknown]
